FAERS Safety Report 6633168-7 (Version None)
Quarter: 2010Q1

REPORT INFORMATION
  Report Type: 
  Country: None (occurrence: None)
  Receive Date: 20100312
  Receipt Date: 20100227
  Transmission Date: 20100710
  Serious: Yes (Other)
  Sender: FDA-Public Use
  Company Number: SE-PFIZER INC-2010006256

PATIENT
  Age: 47 Year
  Sex: Female

DRUGS (3)
  1. DEPO-PROVERA [Suspect]
     Indication: OFF LABEL USE
     Dosage: UNK
     Route: 030
     Dates: start: 20091101
  2. DEPO-PROVERA [Suspect]
     Indication: METRORRHAGIA
  3. DEPO-PROVERA [Suspect]
     Indication: UTERINE LEIOMYOMA

REACTIONS (3)
  - CONTUSION [None]
  - DRUG INEFFECTIVE FOR UNAPPROVED INDICATION [None]
  - RASH PRURITIC [None]
